FAERS Safety Report 7902505-5 (Version None)
Quarter: 2011Q4

REPORT INFORMATION
  Report Type: 
  Country: None (occurrence: None)
  Receive Date: 20111108
  Receipt Date: 20111026
  Transmission Date: 20120403
  Serious: Yes (Other)
  Sender: FDA-Public Use
  Company Number: US-ELI_LILLY_AND_COMPANY-US201111001397

PATIENT
  Age: 77 Year
  Sex: Female

DRUGS (2)
  1. FORTEO [Suspect]
     Dosage: UNK
     Route: 058
     Dates: start: 20111024
  2. FORTEO [Suspect]
     Indication: OSTEOPOROSIS
     Dosage: UNK
     Dates: start: 20111012, end: 20111018

REACTIONS (4)
  - NECK PAIN [None]
  - GALLBLADDER OPERATION [None]
  - DRUG DOSE OMISSION [None]
  - CHEST PAIN [None]
